FAERS Safety Report 8960705 (Version 5)
Quarter: 2013Q3

REPORT INFORMATION
  Report Type: Spontaneous
  Country: DK (occurrence: None)
  Receive Date: 20121130
  Receipt Date: 20130708
  Transmission Date: 20140515
  Serious: Yes (Death, Other)
  Sender: FDA-Public Use
  Company Number: 1506520

PATIENT
  Age: 64 Year
  Sex: Female

DRUGS (10)
  1. PACLITAXEL [Suspect]
     Indication: PRODUCT USED FOR UNKNOWN INDICATION
  2. VINORELBINE TARTRATE [Suspect]
     Indication: PRODUCT USED FOR UNKNOWN INDICATION
  3. HERCEPTIN [Suspect]
     Indication: BREAST CANCER
  4. XELODA [Suspect]
     Indication: PRODUCT USED FOR UNKNOWN INDICATION
  5. CHEMOTHERAPEUTICS [Suspect]
     Indication: PRODUCT USED FOR UNKNOWN INDICATION
  6. LETROZOLE [Suspect]
     Indication: PRODUCT USED FOR UNKNOWN INDICATION
  7. LAPATINIB [Suspect]
     Indication: PRODUCT USED FOR UNKNOWN INDICATION
  8. (EPIRUBICIN} [Concomitant]
  9. (CYCLOPHOSPHAMIDE ) [Concomitant]
  10. TAXOTERE [Concomitant]

REACTIONS (5)
  - Superior vena cava syndrome [None]
  - Disease progression [None]
  - Pelvic pain [None]
  - Pubis fracture [None]
  - Sensory disturbance [None]
